FAERS Safety Report 4566569-1 (Version None)
Quarter: 2005Q1

REPORT INFORMATION
  Report Type: 
  Country: None (occurrence: None)
  Receive Date: 20050126
  Receipt Date: 20050118
  Transmission Date: 20050727
  Serious: Yes (Death, Hospitalization)
  Sender: FDA-Public Use
  Company Number: 2005US000075

PATIENT
  Age: 60 Year
  Sex: Female

DRUGS (4)
  1. PROGRAF [Suspect]
     Indication: PROPHYLAXIS AGAINST TRANSPLANT REJECTION
  2. CELCEPT (MYCOPHENOLATE MOFETIL) [Suspect]
  3. PREDNISONE [Suspect]
  4. MICARDIS (BLIND/PLACEBO) (TELMISARTAN) [Concomitant]

REACTIONS (18)
  - ANAEMIA [None]
  - AZOTAEMIA [None]
  - CARDIO-RESPIRATORY ARREST [None]
  - CAROTID ARTERY THROMBOSIS [None]
  - COMA [None]
  - CYTOMEGALOVIRUS VIRAEMIA [None]
  - ENCEPHALOPATHY [None]
  - ESCHERICHIA URINARY TRACT INFECTION [None]
  - FLUID OVERLOAD [None]
  - GASTROINTESTINAL HAEMORRHAGE [None]
  - HAEMODIALYSIS [None]
  - HYPONATRAEMIA [None]
  - LACUNAR INFARCTION [None]
  - PULSE ABSENT [None]
  - RENAL FAILURE [None]
  - SEPSIS [None]
  - STAPHYLOCOCCAL BACTERAEMIA [None]
  - THROMBOCYTOPENIA [None]
